FAERS Safety Report 14421322 (Version 2)
Quarter: 2018Q2

REPORT INFORMATION
  Report Type: Spontaneous
  Country: IN (occurrence: IN)
  Receive Date: 20180122
  Receipt Date: 20180417
  Transmission Date: 20180711
  Serious: Yes (Hospitalization, Other)
  Sender: FDA-Public Use
  Company Number: IN-BAUSCH-BL-2018-000965

PATIENT
  Age: 23 Year
  Sex: Male

DRUGS (4)
  1. DAUNORUBICIN [Suspect]
     Active Substance: DAUNORUBICIN
     Indication: ACUTE LEUKAEMIA
     Dosage: CYCLICAL
     Route: 065
  2. PREDNISOLONE. [Suspect]
     Active Substance: PREDNISOLONE
     Indication: ACUTE LEUKAEMIA
     Dosage: CYCLICAL
     Route: 065
  3. CYCLOPHOSPHAMIDE. [Suspect]
     Active Substance: CYCLOPHOSPHAMIDE
     Indication: ACUTE LEUKAEMIA
     Dosage: CYCLICAL
     Route: 065
  4. VINCRISTINE [Suspect]
     Active Substance: VINCRISTINE
     Indication: ACUTE LEUKAEMIA
     Dosage: CYCLICAL
     Route: 065

REACTIONS (2)
  - Pleural effusion [Unknown]
  - Histoplasmosis [Unknown]
